FAERS Safety Report 7743952-4 (Version None)
Quarter: 2011Q3

REPORT INFORMATION
  Report Type: 
  Country: None (occurrence: None)
  Receive Date: 20110912
  Receipt Date: 20110905
  Transmission Date: 20111222
  Serious: Yes (Death)
  Sender: FDA-Public Use
  Company Number: GB-GLAXOSMITHKLINE-B0745370A

PATIENT
  Sex: Male

DRUGS (2)
  1. VENTOLIN HFA [Suspect]
     Indication: ASTHMA
     Route: 065
  2. SERETIDE [Concomitant]
     Dates: start: 20040101

REACTIONS (3)
  - ABDOMINAL INJURY [None]
  - DRUG INEFFECTIVE [None]
  - PNEUMONIA [None]
